FAERS Safety Report 5450938-1 (Version None)
Quarter: 2007Q3

REPORT INFORMATION
  Report Type: 
  Country: None (occurrence: None)
  Receive Date: 20070911
  Receipt Date: 20070830
  Transmission Date: 20080115
  Serious: Yes (Other)
  Sender: FDA-Public Use
  Company Number: 238480K06USA

PATIENT
  Age: 51 Year
  Sex: Female
  Weight: 90.2658 kg

DRUGS (1)
  1. REBIF [Suspect]
     Indication: MULTIPLE SCLEROSIS
     Dosage: 44 MCG, 3 IN 1 WEEKS, SUBCUTANEOUS
     Route: 058
     Dates: start: 20030821, end: 20060901

REACTIONS (2)
  - COLONIC POLYP [None]
  - NON-HODGKIN'S LYMPHOMA [None]
